FAERS Safety Report 9359990 (Version 3)
Quarter: 2014Q1

REPORT INFORMATION
  Report Type: Report from Study
  Country: BR (occurrence: BR)
  Receive Date: 20130621
  Receipt Date: 20140114
  Transmission Date: 20141002
  Serious: Yes (Hospitalization, Other)
  Sender: FDA-Public Use
  Company Number: BR-ROCHE-703510

PATIENT
  Age: 50 Year
  Sex: Female
  Weight: 50 kg

DRUGS (25)
  1. ACTEMRA [Suspect]
     Indication: RHEUMATOID ARTHRITIS
     Dosage: LAST DOSE ON 01/OCT/2013
     Route: 042
     Dates: start: 20100122
  2. RITUXAN [Suspect]
     Indication: RHEUMATOID ARTHRITIS
     Dosage: FORM INFUSION
     Route: 042
     Dates: start: 20080625, end: 20080709
  3. RITUXAN [Suspect]
     Route: 042
     Dates: start: 20100622
  4. CODATEN [Concomitant]
     Indication: ANALGESIC THERAPY
  5. ALIVIUM [Concomitant]
     Indication: ANALGESIC THERAPY
  6. PURAN T4 [Concomitant]
     Indication: HYPOTHYROIDISM
     Route: 065
  7. AMYTRIL [Concomitant]
     Indication: SLEEP DISORDER
     Route: 065
  8. DALMADORM [Concomitant]
     Indication: SLEEP DISORDER THERAPY
  9. ACTONEL [Concomitant]
     Indication: MINERAL SUPPLEMENTATION
     Route: 065
  10. LOSARTAN POTASSIUM [Concomitant]
     Indication: HYPERTENSION
     Route: 065
  11. PANTOPRAZOLE [Concomitant]
     Route: 065
  12. PREDSIM [Concomitant]
     Route: 065
  13. SINVASTACOR [Concomitant]
  14. GABAPENTIN [Concomitant]
     Route: 065
  15. FLUOXETIN [Concomitant]
     Route: 065
  16. METHOTREXATE [Concomitant]
     Dosage: BEFORE 2008
     Route: 065
  17. RIVOTRIL [Concomitant]
     Route: 065
     Dates: start: 20100506
  18. KETOPROFEN [Concomitant]
     Route: 065
     Dates: start: 20100502
  19. NIMESULIDE [Concomitant]
  20. POLARAMINE [Concomitant]
  21. OMEPRAZOLE [Concomitant]
  22. PREDNISONE [Concomitant]
  23. AMYTRIL [Concomitant]
  24. BEZAFIBRATE [Concomitant]
  25. CYCLOBENZAPRINE [Concomitant]

REACTIONS (24)
  - Rotator cuff syndrome [Not Recovered/Not Resolved]
  - Headache [Recovered/Resolved]
  - Intervertebral disc protrusion [Recovering/Resolving]
  - Spinal osteoarthritis [Recovered/Resolved]
  - Spinal disorder [Unknown]
  - Bursitis [Recovering/Resolving]
  - Hypersensitivity [Recovered/Resolved]
  - Rash [Recovered/Resolved]
  - Urinary tract infection [Recovered/Resolved]
  - Gastroenteritis [Recovered/Resolved]
  - Dyspnoea [Recovered/Resolved]
  - Renal pain [Recovered/Resolved]
  - Nausea [Recovered/Resolved]
  - Red blood cell count decreased [Recovered/Resolved]
  - Lymphocyte count decreased [Recovered/Resolved]
  - Dizziness [Recovered/Resolved]
  - Malaise [Recovered/Resolved]
  - Pruritus [Recovered/Resolved]
  - White blood cell count decreased [Recovered/Resolved]
  - Pruritus [Recovered/Resolved]
  - Generalised oedema [Recovered/Resolved]
  - Somnolence [Recovered/Resolved]
  - Respiratory tract infection bacterial [Recovered/Resolved]
  - Viral infection [Recovered/Resolved]
